FAERS Safety Report 13243370 (Version 1)
Quarter: 2017Q1

REPORT INFORMATION
  Report Type: Spontaneous
  Country: AU (occurrence: AU)
  Receive Date: 20170217
  Receipt Date: 20170217
  Transmission Date: 20170428
  Serious: Yes (Other)
  Sender: FDA-Public Use
  Company Number: AU-SA-2017SA024809

PATIENT
  Sex: Male

DRUGS (2)
  1. VALIUM [Concomitant]
     Active Substance: DIAZEPAM
  2. PLAVIX [Suspect]
     Active Substance: CLOPIDOGREL BISULFATE
     Route: 065
     Dates: start: 2009

REACTIONS (5)
  - Feeling abnormal [Unknown]
  - Cardiac disorder [Unknown]
  - Malaise [Unknown]
  - Cough [Unknown]
  - Pain [Unknown]
